FAERS Safety Report 23937060 (Version 2)
Quarter: 2024Q2

REPORT INFORMATION
  Report Type: Spontaneous
  Country: US (occurrence: US)
  Receive Date: 20240604
  Receipt Date: 20240604
  Transmission Date: 20240716
  Serious: Yes (Other)
  Sender: FDA-Public Use
  Company Number: US-AMGEN-USASP2024108542

PATIENT

DRUGS (6)
  1. PREDNISONE [Suspect]
     Active Substance: PREDNISONE
     Indication: Diffuse large B-cell lymphoma
     Dosage: UNK (ON DAY 1 FOR SIX 21-DAY CYCLES)
     Route: 065
  2. RITUXIMAB [Suspect]
     Active Substance: RITUXIMAB
     Indication: Diffuse large B-cell lymphoma
     Dosage: UNK (ON DAY 1 FOR SIX 21-DAY CYCLES)
     Route: 065
  3. CYCLOPHOSPHAMIDE [Concomitant]
     Active Substance: CYCLOPHOSPHAMIDE
     Indication: Diffuse large B-cell lymphoma
     Dosage: UNKUNK (ON DAY 1 FOR SIX 21-DAY CYCLES)
     Route: 065
  4. DOXORUBICIN [Concomitant]
     Active Substance: DOXORUBICIN
     Indication: Diffuse large B-cell lymphoma
     Dosage: UNK (ON DAY 1 FOR SIX 21-DAY CYCLES)UNK
     Route: 065
  5. VINCRISTINE [Concomitant]
     Active Substance: VINCRISTINE
     Indication: Diffuse large B-cell lymphoma
     Dosage: UNK (ON DAY 1 FOR SIX 21-DAY CYCLES)
     Route: 065
  6. ZANUBRUTINIB [Concomitant]
     Active Substance: ZANUBRUTINIB
     Indication: Diffuse large B-cell lymphoma
     Dosage: UNK (ON DAYS 1-21 FOR SIX 21 -DAY CYCLES)
     Route: 065

REACTIONS (1)
  - Febrile neutropenia [Unknown]
